FAERS Safety Report 6140843-X (Version None)
Quarter: 2009Q2

REPORT INFORMATION
  Report Type: 
  Country: None (occurrence: None)
  Receive Date: 20090402
  Receipt Date: 20090130
  Transmission Date: 20091009
  Serious: No
  Sender: FDA-Public Use
  Company Number: US-KINGPHARMUSA00001-K200900096

PATIENT
  Age: 55 Year
  Sex: Male
  Weight: 62.132 kg

DRUGS (4)
  1. SKELAXIN [Suspect]
     Indication: MUSCLE SPASMS
     Dosage: 800 MG, TID
     Route: 048
     Dates: start: 20090129
  2. ACE INHIBITOR NOS [Concomitant]
     Indication: HYPERTENSION
     Dosage: UNK
     Route: 048
  3. VITAMINS                           /90003601/ [Concomitant]
     Dosage: UNK
     Route: 048
  4. SUPPLEMENTS [Concomitant]
     Dosage: UNK
     Route: 048

REACTIONS (6)
  - FATIGUE [None]
  - FEELING ABNORMAL [None]
  - FEELING JITTERY [None]
  - INSOMNIA [None]
  - NERVOUSNESS [None]
  - PSYCHOMOTOR HYPERACTIVITY [None]
